FAERS Safety Report 7511194-3 (Version None)
Quarter: 2011Q2

REPORT INFORMATION
  Report Type: 
  Country: None (occurrence: None)
  Receive Date: 20110531
  Receipt Date: 20110516
  Transmission Date: 20111010
  Serious: Yes (Hospitalization)
  Sender: FDA-Public Use
  Company Number: PHHY2011BR42552

PATIENT
  Sex: Male

DRUGS (1)
  1. TRILEPTAL [Suspect]

REACTIONS (4)
  - DYSPNOEA [None]
  - ABDOMINAL PAIN [None]
  - INFARCTION [None]
  - PARAESTHESIA ORAL [None]
